FAERS Safety Report 24580466 (Version 1)
Quarter: 2024Q4

REPORT INFORMATION
  Report Type: Spontaneous
  Country: CN (occurrence: CN)
  Receive Date: 20241105
  Receipt Date: 20241105
  Transmission Date: 20250115
  Serious: Yes (Hospitalization, Disabling)
  Sender: ROCHE
  Company Number: CN-ROCHE-10000120066

PATIENT
  Age: 61 Year
  Sex: Female
  Weight: 78.6 kg

DRUGS (4)
  1. TRASTUZUMAB EMTANSINE [Suspect]
     Active Substance: TRASTUZUMAB EMTANSINE
     Indication: Breast cancer
     Dosage: WE CONSIDER THE FREQUENCY OF MEDICATION SHOULD BE ONCE A DAY
     Route: 042
     Dates: start: 20240611, end: 20240611
  2. TRASTUZUMAB [Suspect]
     Active Substance: TRASTUZUMAB
     Indication: Breast cancer
     Route: 065
  3. PERTUZUMAB [Suspect]
     Active Substance: PERTUZUMAB
     Indication: Breast cancer
     Route: 065
  4. SODIUM CHLORIDE [Concomitant]
     Active Substance: SODIUM CHLORIDE

REACTIONS (5)
  - Platelet count decreased [Recovered/Resolved]
  - Alanine aminotransferase increased [Recovering/Resolving]
  - Aspartate aminotransferase increased [Recovering/Resolving]
  - Decreased appetite [Unknown]
  - Diarrhoea [Unknown]

NARRATIVE: CASE EVENT DATE: 20240617
